FAERS Safety Report 7689133-4 (Version None)
Quarter: 2011Q3

REPORT INFORMATION
  Report Type: 
  Country: None (occurrence: None)
  Receive Date: 20110817
  Receipt Date: 20110808
  Transmission Date: 20111222
  Serious: Yes (Hospitalization, Other)
  Sender: FDA-Public Use
  Company Number: US-MERCK-1104USA01931

PATIENT
  Age: 74 Year
  Sex: Female

DRUGS (3)
  1. FOSAMAX [Suspect]
     Route: 048
     Dates: start: 20060701
  2. FOSAMAX [Suspect]
     Indication: OSTEOPOROSIS
     Route: 048
     Dates: start: 20050101, end: 20100201
  3. ALENDRONATE SODIUM [Suspect]
     Route: 048
     Dates: start: 20071201, end: 20100101

REACTIONS (19)
  - VERTIGO POSITIONAL [None]
  - VERTEBROBASILAR INSUFFICIENCY [None]
  - HAEMORRHOIDS [None]
  - INTERVERTEBRAL DISC PROTRUSION [None]
  - FEMUR FRACTURE [None]
  - FALL [None]
  - ARTERIAL INSUFFICIENCY [None]
  - HYPOKALAEMIA [None]
  - CAROTID ARTERY STENOSIS [None]
  - PERINEURIAL CYST [None]
  - INTERVERTEBRAL DISC DISORDER [None]
  - INTERVERTEBRAL DISC DEGENERATION [None]
  - CHRONIC OBSTRUCTIVE PULMONARY DISEASE [None]
  - INTERMITTENT CLAUDICATION [None]
  - PERIPHERAL VASCULAR DISORDER [None]
  - LOW TURNOVER OSTEOPATHY [None]
  - DIVERTICULUM [None]
  - SIDEROBLASTIC ANAEMIA [None]
  - DIABETES MELLITUS [None]
